FAERS Safety Report 20832562 (Version 1)
Quarter: 2022Q2

REPORT INFORMATION
  Report Type: 
  Country: None (occurrence: None)
  Receive Date: 20220516
  Receipt Date: 20220516
  Transmission Date: 20220721
  Serious: No
  Sender: FDA-Public Use
  Company Number: ROCHE-3093360

PATIENT
  Age: 29 Year
  Weight: 71.278 kg

DRUGS (2)
  1. OCREVUS [Suspect]
     Active Substance: OCRELIZUMAB
     Dates: start: 202111
  2. DULOXETINE [Concomitant]
     Active Substance: DULOXETINE

REACTIONS (3)
  - COVID-19 [None]
  - Vitamin D decreased [None]
  - Vitamin B12 decreased [None]

NARRATIVE: CASE EVENT DATE: 20220415
